FAERS Safety Report 5200725-4 (Version None)
Quarter: 2006Q4

REPORT INFORMATION
  Report Type: 
  Country: None (occurrence: None)
  Receive Date: 20061016
  Receipt Date: 20050819
  Transmission Date: 20070319
  Serious: Yes (Other)
  Sender: FDA-Public Use
  Company Number: 2005118262

PATIENT
  Age: 54 Year
  Sex: Female
  Weight: 54.4316 kg

DRUGS (10)
  1. NEURONTIN [Suspect]
     Indication: ANXIETY
     Dosage: ORAL
     Route: 048
     Dates: start: 20020101
  2. NEURONTIN [Suspect]
     Indication: BRUXISM
     Dosage: ORAL
     Route: 048
     Dates: start: 20020101
  3. NEURONTIN [Suspect]
     Indication: HOT FLUSH
     Dosage: ORAL
     Route: 048
     Dates: start: 20020101
  4. NEURONTIN [Suspect]
     Indication: IRRITABILITY
     Dosage: ORAL
     Route: 048
     Dates: start: 20020101
  5. DEXTROSTAT [Concomitant]
  6. ACYCLOVIR [Concomitant]
  7. ATENOLOL [Concomitant]
  8. KLONOPIN [Concomitant]
  9. ATIVAN [Concomitant]
  10. WELLBUTRIN XL [Concomitant]

REACTIONS (6)
  - APHASIA [None]
  - ASTHENIA [None]
  - DRUG INEFFECTIVE [None]
  - DYSPEPSIA [None]
  - HERPES VIRUS INFECTION [None]
  - MENOPAUSE [None]
